FAERS Safety Report 6918406-5 (Version None)
Quarter: 2010Q3

REPORT INFORMATION
  Report Type: 
  Country: None (occurrence: None)
  Receive Date: 20100811
  Receipt Date: 20100803
  Transmission Date: 20110219
  Serious: No
  Sender: FDA-Public Use
  Company Number: US-BIOGENIDEC-2010BI027217

PATIENT
  Age: 52 Year
  Sex: Male

DRUGS (1)
  1. TYSABRI [Suspect]
     Indication: MULTIPLE SCLEROSIS
     Route: 042
     Dates: start: 20100226

REACTIONS (12)
  - APHASIA [None]
  - ASTHENIA [None]
  - DIZZINESS [None]
  - DYSSTASIA [None]
  - EYE PAIN [None]
  - HOT FLUSH [None]
  - INFECTION [None]
  - NAUSEA [None]
  - PAIN IN EXTREMITY [None]
  - PNEUMONIA [None]
  - RETCHING [None]
  - WHITE BLOOD CELL COUNT INCREASED [None]
